FAERS Safety Report 9830081 (Version 1)
Quarter: 2014Q1

REPORT INFORMATION
  Report Type: Spontaneous
  Country: US (occurrence: US)
  Receive Date: 20140120
  Receipt Date: 20140120
  Transmission Date: 20141002
  Serious: Yes (Other)
  Sender: FDA-Public Use
  Company Number: US-BAYER-2014-006019

PATIENT
  Age: 71 Year
  Sex: Male
  Weight: 146.3 kg

DRUGS (3)
  1. ALKA-SELTZER PLUS SEVERE COLD + FLU FORMULA [Suspect]
     Indication: NASOPHARYNGITIS
     Dosage: 2 TABLET/CAPLET/GELCAP EVERY 4 HOURS
     Route: 048
     Dates: start: 20140107, end: 20140108
  2. ALKA-SELTZER PLUS COLD + COUGH FORMULA CITRUS [Suspect]
     Indication: NASOPHARYNGITIS
     Dosage: 2 TABLET/CAPLET/GELCAP EVERY 4 HOURS
     Route: 048
     Dates: start: 20140104, end: 20140108
  3. GLIMEPIRIDE [Concomitant]

REACTIONS (2)
  - Blood glucose increased [Not Recovered/Not Resolved]
  - Drug administration error [None]
